FAERS Safety Report 9669674 (Version 1)
Quarter: 2013Q4

REPORT INFORMATION
  Report Type: Spontaneous
  Country: US (occurrence: US)
  Receive Date: 20131105
  Receipt Date: 20131105
  Transmission Date: 20140711
  Serious: Yes (Other)
  Sender: FDA-Public Use
  Company Number: US-BRISTOL-MYERS SQUIBB COMPANY-19649953

PATIENT
  Age: 63 Year
  Sex: Male

DRUGS (3)
  1. BYDUREON [Suspect]
  2. METFORMIN HCL TABS 500MG [Concomitant]
     Indication: DIABETES MELLITUS
     Dosage: 1DF: 2TABS
  3. GLIMEPIRIDE [Concomitant]
     Indication: DIABETES MELLITUS

REACTIONS (1)
  - Pneumonia viral [Recovering/Resolving]
